FAERS Safety Report 5032612-9 (Version None)
Quarter: 2006Q2

REPORT INFORMATION
  Report Type: 
  Country: None (occurrence: None)
  Receive Date: 20060620
  Receipt Date: 20060620
  Transmission Date: 20061013
  Serious: Yes (Other)
  Sender: FDA-Public Use
  Company Number: None

PATIENT
  Age: 82 Year
  Sex: Female
  Weight: 61.2356 kg

DRUGS (1)
  1. SOTALOL GENERIC FOR BETAPACE (APOTEX U) [Suspect]
     Dosage: 120 MG

REACTIONS (1)
  - MUSCULAR WEAKNESS [None]
